FAERS Safety Report 5116475-9 (Version None)
Quarter: 2006Q3

REPORT INFORMATION
  Report Type: 
  Country: None (occurrence: None)
  Receive Date: 20060928
  Receipt Date: 20060915
  Transmission Date: 20061208
  Serious: Yes (Other)
  Sender: FDA-Public Use
  Company Number: FR-AMGEN-UK193631

PATIENT
  Age: 40 Year
  Sex: Male

DRUGS (2)
  1. KEPIVANCE [Suspect]
     Indication: MUCOSAL INFLAMMATION
     Route: 065
     Dates: start: 20060904, end: 20060906
  2. ETOPOSIDE [Concomitant]
     Route: 065

REACTIONS (1)
  - PERIORBITAL OEDEMA [None]
